FAERS Safety Report 6673289-6 (Version None)
Quarter: 2010Q2

REPORT INFORMATION
  Report Type: 
  Country: None (occurrence: None)
  Receive Date: 20100408
  Receipt Date: 20100327
  Transmission Date: 20101027
  Serious: Yes (Other)
  Sender: FDA-Public Use
  Company Number: US-PFIZER INC-2010040029

PATIENT
  Sex: Female
  Weight: 126.98 kg

DRUGS (7)
  1. LYRICA [Suspect]
     Indication: FIBROMYALGIA
     Dosage: 150 MG, 2X/DAY
     Route: 048
     Dates: start: 20090101, end: 20100301
  2. OXYCONTIN [Concomitant]
     Dosage: UNK
  3. PERCOCET [Concomitant]
     Indication: PAIN
     Dosage: UNK
  4. REQUIP [Concomitant]
     Dosage: UNK
  5. SYNTHROID [Concomitant]
     Indication: THYROID DISORDER
     Dosage: UNK
  6. PRAVASTATIN [Concomitant]
     Dosage: UNK
  7. VALIUM [Concomitant]
     Indication: MUSCLE SPASMS
     Dosage: UNK

REACTIONS (16)
  - ABDOMINAL DISTENSION [None]
  - ABNORMAL SENSATION IN EYE [None]
  - BLOOD CHOLESTEROL INCREASED [None]
  - COLLAPSE OF LUNG [None]
  - DYSPNOEA [None]
  - HYPERSENSITIVITY [None]
  - LUNG DISORDER [None]
  - MALAISE [None]
  - MEMORY IMPAIRMENT [None]
  - OEDEMA PERIPHERAL [None]
  - PULMONARY GRANULOMA [None]
  - SKIN LESION [None]
  - SWELLING FACE [None]
  - THROAT TIGHTNESS [None]
  - URINARY TRACT INFECTION [None]
  - VISUAL ACUITY REDUCED [None]
